FAERS Safety Report 21440134 (Version 2)
Quarter: 2022Q4

REPORT INFORMATION
  Report Type: Report from Study
  Country: US (occurrence: US)
  Receive Date: 20221011
  Receipt Date: 20221202
  Transmission Date: 20230113
  Serious: Yes (Other)
  Sender: FDA-Public Use
  Company Number: US-NOVARTISPH-NVSC2022US228697

PATIENT
  Sex: Female

DRUGS (1)
  1. ENTRESTO [Suspect]
     Active Substance: SACUBITRIL\VALSARTAN
     Indication: Product used for unknown indication
     Dosage: 1 DOSAGE FORM, (97/103 MG)
     Route: 065
     Dates: start: 202009

REACTIONS (6)
  - Peritoneal neoplasm [Unknown]
  - Stress [Unknown]
  - Mental disorder [Unknown]
  - Decreased appetite [Not Recovered/Not Resolved]
  - Influenza [Recovering/Resolving]
  - Illness [Recovering/Resolving]

NARRATIVE: CASE EVENT DATE: 20210101
